FAERS Safety Report 8868381 (Version 1)
Quarter: 2012Q4

REPORT INFORMATION
  Report Type: 
  Country: KR (occurrence: KR)
  Receive Date: 20121029
  Receipt Date: 20121029
  Transmission Date: 20130627
  Serious: Yes (Hospitalization)
  Sender: FDA-Public Use
  Company Number: PHHY2012KR096257

PATIENT
  Age: 14 Year
  Sex: Female
  Weight: 45 kg

DRUGS (1)
  1. CARBAMAZEPINE [Suspect]
     Dosage: 30 DF (300mg)
     Route: 048

REACTIONS (7)
  - Neurological decompensation [Unknown]
  - Cardiovascular disorder [Unknown]
  - Grand mal convulsion [Unknown]
  - Cardiac arrest [Unknown]
  - Toxicity to various agents [Recovering/Resolving]
  - Drug level increased [Unknown]
  - Accidental exposure to product [Unknown]
